FAERS Safety Report 9193963 (Version 1)
Quarter: 2013Q1

REPORT INFORMATION
  Report Type: Spontaneous
  Country: BR (occurrence: BR)
  Receive Date: 20130327
  Receipt Date: 20130327
  Transmission Date: 20140127
  Serious: Yes (Hospitalization, Other)
  Sender: FDA-Public Use
  Company Number: PHHY2013BR029907

PATIENT
  Sex: Female

DRUGS (2)
  1. APRESOLINE [Suspect]
     Indication: HYPERTENSION
     Dosage: 3 DF (50MG), DAILY
     Dates: start: 200803
  2. DIOVAN HCT [Suspect]
     Indication: HYPERTENSION
     Dosage: 1 DF(160/12.5MG), DAILY
     Dates: start: 2008

REACTIONS (1)
  - Blood pressure increased [Recovered/Resolved]
